FAERS Safety Report 15019760 (Version 1)
Quarter: 2018Q2

REPORT INFORMATION
  Report Type: Spontaneous
  Country: DE (occurrence: DE)
  Receive Date: 20180618
  Receipt Date: 20180618
  Transmission Date: 20180711
  Serious: Yes (Hospitalization)
  Sender: FDA-Public Use
  Company Number: DE-TEVA-2018-DE-907493

PATIENT
  Age: 78 Year
  Sex: Male
  Weight: 80 kg

DRUGS (9)
  1. PANTOPRAZOL [Concomitant]
     Active Substance: PANTOPRAZOLE SODIUM
     Dosage: 40 MILLIGRAM DAILY;
     Route: 065
  2. EBRANTIL 30MG [Concomitant]
     Dosage: 90 MILLIGRAM DAILY;
     Route: 065
  3. TILIDINE [Suspect]
     Active Substance: TILIDINE
     Dosage: 100 | 8 MG, DEMAND
     Route: 065
  4. SIMVASTATIN. [Concomitant]
     Active Substance: SIMVASTATIN
     Dosage: 40 MILLIGRAM DAILY;
     Route: 065
  5. CLOPIDOGREL [Concomitant]
     Active Substance: CLOPIDOGREL BISULFATE
     Dosage: 75 MILLIGRAM DAILY;
     Route: 065
  6. GABAPENTIN. [Suspect]
     Active Substance: GABAPENTIN
     Dosage: 2400 MILLIGRAM DAILY;
     Route: 065
  7. LEVOTHYROXIN [Concomitant]
     Active Substance: LEVOTHYROXINE
     Dosage: 75 MICROGRAM DAILY;
     Route: 065
  8. ASS 50 [Concomitant]
     Dosage: 50 MILLIGRAM DAILY;
     Route: 065
  9. VALSARTAN. [Concomitant]
     Active Substance: VALSARTAN
     Dosage: 160 MILLIGRAM DAILY;
     Route: 065

REACTIONS (5)
  - Visual impairment [Unknown]
  - General physical health deterioration [Unknown]
  - Syncope [Unknown]
  - Drug prescribing error [Unknown]
  - Medication monitoring error [Unknown]
